FAERS Safety Report 8415030-2 (Version None)
Quarter: 2012Q2

REPORT INFORMATION
  Report Type: 
  Country: None (occurrence: None)
  Receive Date: 20120606
  Receipt Date: 20120525
  Transmission Date: 20120825
  Serious: Yes (Other)
  Sender: FDA-Public Use
  Company Number: CA-JNJFOC-20120519599

PATIENT
  Sex: Male
  Weight: 144 kg

DRUGS (1)
  1. REMICADE [Suspect]
     Indication: COLITIS ULCERATIVE
     Dosage: +52 WEEKS
     Route: 042
     Dates: start: 20100623

REACTIONS (1)
  - INTESTINAL OPERATION [None]
